FAERS Safety Report 8363984-5 (Version None)
Quarter: 2012Q2

REPORT INFORMATION
  Report Type: 
  Country: None (occurrence: None)
  Receive Date: 20120516
  Receipt Date: 20120511
  Transmission Date: 20120825
  Serious: Yes (Other)
  Sender: FDA-Public Use
  Company Number: US-ASTRAZENECA-2012SE16854

PATIENT
  Age: 59 Year
  Sex: Female
  Weight: 83 kg

DRUGS (29)
  1. NEXIUM [Suspect]
     Route: 048
     Dates: start: 20110101
  2. ROLAIDS [Concomitant]
  3. ATENOLOL [Concomitant]
  4. ASPIRIN [Concomitant]
  5. MECLIZINE HCL [Concomitant]
  6. ESTRADERM [Concomitant]
     Dosage: 0.05MG ONE 24-HOUR PATCH TO SKIN A DAY
  7. ZOFRAN ODT [Concomitant]
  8. LEVAQUIN [Concomitant]
     Dates: start: 20080918
  9. TRIAMTERENE AND HYDROCHLOROTHIAZIDE [Concomitant]
     Dosage: 37.5-25MG PILL ONCE A DAY
  10. CLONAZEPAM [Concomitant]
  11. FLUCONAZOLE [Concomitant]
     Dates: start: 20090212
  12. NEXIUM [Suspect]
     Indication: GASTROOESOPHAGEAL REFLUX DISEASE
     Route: 048
     Dates: start: 20090101, end: 20110101
  13. NEXIUM [Suspect]
     Route: 048
     Dates: start: 20090519
  14. TYLENOL (CAPLET) [Concomitant]
  15. CITALOPRAM HYDROBROMIDE [Concomitant]
     Dates: start: 20081128
  16. POTASSIUM CHLORIDE [Concomitant]
  17. SIMVASTATION [Concomitant]
  18. ALBUTEROL SULFATE [Concomitant]
     Dosage: 0.083%ML AS NEEDED
  19. METRONIDAZOLE [Concomitant]
     Dates: start: 20090218
  20. VITAMIN E [Concomitant]
     Dosage: 1000 UNIT 3 PILLS DAILY
  21. HYDROCODONE BITARTRATE AND ACETAMINOPHEN [Concomitant]
     Dosage: 5/500
     Dates: start: 20081128
  22. ZYRTEC [Concomitant]
     Indication: MULTIPLE ALLERGIES
  23. ESTRADERM [Concomitant]
     Dates: start: 20081208
  24. GLIMEPIRIDE [Concomitant]
  25. IBUPROFEN [Concomitant]
     Dates: start: 20080826
  26. CARISOPRODOL [Concomitant]
     Dates: start: 20090203
  27. ATENOLOL [Concomitant]
     Dates: start: 20090407
  28. EXFORGE HCT [Concomitant]
     Dosage: 10-160-12.5MG ONCE A DAY
  29. LISINOPRIL [Concomitant]
     Dates: start: 20081205

REACTIONS (10)
  - CEREBROVASCULAR ACCIDENT [None]
  - MIGRAINE [None]
  - VITAMIN D DEFICIENCY [None]
  - TRANSIENT ISCHAEMIC ATTACK [None]
  - VERTIGO [None]
  - OSTEOPOROSIS [None]
  - FOOT FRACTURE [None]
  - ANXIETY [None]
  - CARDIAC DISORDER [None]
  - DEPRESSION [None]
